FAERS Safety Report 6856254-5 (Version None)
Quarter: 2010Q3

REPORT INFORMATION
  Report Type: 
  Country: None (occurrence: None)
  Receive Date: 20100719
  Receipt Date: 20100712
  Transmission Date: 20110219
  Serious: Yes (Other)
  Sender: FDA-Public Use
  Company Number: US-PERRIGO-10US011224

PATIENT
  Sex: Female
  Weight: 13.605 kg

DRUGS (1)
  1. ACETAMINOPHEN [Suspect]
     Indication: ACCIDENTAL DRUG INTAKE BY CHILD
     Dosage: 2400 MG, SINGLE
     Route: 048
     Dates: start: 20100712, end: 20100712

REACTIONS (1)
  - ACCIDENTAL OVERDOSE [None]
